FAERS Safety Report 8901257 (Version 3)
Quarter: 2013Q3

REPORT INFORMATION
  Report Type: Report from Study
  Country: JP (occurrence: JP)
  Receive Date: 20121108
  Receipt Date: 20130918
  Transmission Date: 20140515
  Serious: Yes (Life-Threatening, Other)
  Sender: FDA-Public Use
  Company Number: JP-VERTEX PHARMACEUTICAL INC.-AE-2012-006235

PATIENT
  Age: 64 Year
  Sex: Female

DRUGS (11)
  1. VX-950 (TELAPREVIR) [Suspect]
     Indication: CHRONIC HEPATITIS C
     Dosage: 1500 MG, QD
     Route: 048
     Dates: start: 20120416, end: 20120425
  2. RIBAVIRIN [Suspect]
     Indication: CHRONIC HEPATITIS C
     Dosage: 400 MG, QD
     Route: 048
     Dates: start: 20120416, end: 20120425
  3. PEGINTERFERON ALFA-2B [Suspect]
     Indication: CHRONIC HEPATITIS C
     Dosage: 1.5 ?G/KG, QW
     Route: 058
     Dates: start: 20120416, end: 20120423
  4. PLAVIX [Concomitant]
     Dosage: 1 DF, QD
     Route: 048
  5. AMLODIN [Concomitant]
     Dosage: 5 MG, QD
     Route: 048
  6. BLOPRESS [Concomitant]
     Dosage: 8 MG, QD
     Route: 048
  7. BAYASPIRIN [Concomitant]
     Dosage: 1 DF, QD
     Route: 048
  8. CEROCRAL [Concomitant]
     Dosage: 2 DF, QD
     Route: 048
  9. OMEPRAL [Concomitant]
     Dosage: 1 DF, QD
     Route: 048
  10. LENDORMIN [Concomitant]
     Dosage: 1 DF, QD
     Route: 048
  11. ZYLORIC [Concomitant]
     Dosage: 2 DF, QD
     Route: 048
     Dates: start: 20120418, end: 20120503

REACTIONS (2)
  - Sepsis [Recovered/Resolved]
  - Neutrophil count decreased [Recovered/Resolved]
